FAERS Safety Report 8209838-6 (Version None)
Quarter: 2012Q1

REPORT INFORMATION
  Report Type: 
  Country: None (occurrence: None)
  Receive Date: 20120314
  Receipt Date: 20120307
  Transmission Date: 20120608
  Serious: Yes (Hospitalization)
  Sender: FDA-Public Use
  Company Number: GB-GILEAD-2012-0051846

PATIENT
  Age: 32 Year
  Sex: Male

DRUGS (2)
  1. TRUVADA [Suspect]
     Indication: PROPHYLAXIS AGAINST HIV INFECTION
     Dosage: 1 TABLET
     Route: 048
     Dates: start: 20120220, end: 20120220
  2. LOPINAVIR [Concomitant]
     Indication: PROPHYLAXIS AGAINST HIV INFECTION
     Dates: start: 20120220, end: 20120221

REACTIONS (3)
  - FACIAL PAIN [None]
  - TRIGEMINAL NEURALGIA [None]
  - PARAESTHESIA [None]
